FAERS Safety Report 23984253 (Version 1)
Quarter: 2024Q2

REPORT INFORMATION
  Report Type: Spontaneous
  Country: CA (occurrence: CA)
  Receive Date: 20240618
  Receipt Date: 20240618
  Transmission Date: 20240715
  Serious: Yes (Other)
  Sender: FDA-Public Use
  Company Number: CA-PFIZER INC-202400191513

PATIENT

DRUGS (3)
  1. INFLECTRA [Suspect]
     Active Substance: INFLIXIMAB-DYYB
     Indication: Crohn^s disease
     Dosage: 500 MG, 8 WEEKS
     Route: 042
     Dates: start: 20220222
  2. INFLECTRA [Suspect]
     Active Substance: INFLIXIMAB-DYYB
     Dosage: 500 MG, 8 WEEKS
     Route: 042
     Dates: start: 20240416
  3. INFLECTRA [Suspect]
     Active Substance: INFLIXIMAB-DYYB
     Dosage: 500 MG, 8 WEEKS
     Route: 042
     Dates: start: 20240610

REACTIONS (5)
  - Cellulitis [Recovered/Resolved]
  - Pain [Recovered/Resolved]
  - Erythema [Recovered/Resolved]
  - Scratch [Recovered/Resolved]
  - Papilloma viral infection [Not Recovered/Not Resolved]

NARRATIVE: CASE EVENT DATE: 20240501
